FAERS Safety Report 15315683 (Version 1)
Quarter: 2018Q3

REPORT INFORMATION
  Report Type: Spontaneous
  Country: US (occurrence: US)
  Receive Date: 20180824
  Receipt Date: 20180824
  Transmission Date: 20181010
  Serious: Yes (Other)
  Sender: FDA-Public Use
  Company Number: US-MYLANLABS-2018M1063018

PATIENT
  Age: 13 Year

DRUGS (2)
  1. METHOTREXATE. [Suspect]
     Active Substance: METHOTREXATE
     Indication: OSTEOSARCOMA
     Dosage: 12 G/M2
     Route: 065
  2. LEUCOVORIN                         /00566701/ [Concomitant]
     Active Substance: LEUCOVORIN
     Indication: OSTEOSARCOMA
     Dosage: HIGH?DOSE
     Route: 065

REACTIONS (3)
  - Neutropenia [Unknown]
  - Mucosal inflammation [Unknown]
  - Nephropathy toxic [Unknown]
